FAERS Safety Report 21467758 (Version 1)
Quarter: 2022Q4

REPORT INFORMATION
  Report Type: Spontaneous
  Country: US (occurrence: US)
  Receive Date: 20221017
  Receipt Date: 20221017
  Transmission Date: 20230112
  Serious: No
  Sender: FDA-Public Use
  Company Number: US-ALLERGAN-2143780US

PATIENT
  Sex: Female

DRUGS (2)
  1. LINZESS [Suspect]
     Active Substance: LINACLOTIDE
     Indication: Product used for unknown indication
     Dosage: 145 MG
  2. LINZESS [Suspect]
     Active Substance: LINACLOTIDE
     Dosage: 72 MG

REACTIONS (2)
  - Abdominal distension [Unknown]
  - Drug ineffective [Unknown]
